FAERS Safety Report 4548224-7 (Version None)
Quarter: 2004Q4

REPORT INFORMATION
  Report Type: 
  Country: None (occurrence: None)
  Receive Date: 20041227
  Receipt Date: 20041025
  Transmission Date: 20050328
  Serious: No
  Sender: FDA-Public Use
  Company Number: 04P-163-0276995-00

PATIENT
  Age: 77 Year
  Sex: Female
  Weight: 56.6996 kg

DRUGS (4)
  1. HUMIRA [Suspect]
     Indication: RHEUMATOID ARTHRITIS
     Dosage: 40 MG, 1 IN 2  WK, SUBCUTANEOUS
     Route: 058
     Dates: start: 20040401
  2. PROPRANOLOL HYDROCHLORIDE [Concomitant]
  3. ZETIA [Concomitant]
  4. MULTI-VITAMINS [Concomitant]

REACTIONS (1)
  - URINARY TRACT INFECTION [None]
